FAERS Safety Report 4411815-8 (Version None)
Quarter: 2004Q2

REPORT INFORMATION
  Report Type: 
  Country: None (occurrence: None)
  Receive Date: 20040630
  Receipt Date: 20040325
  Transmission Date: 20050107
  Serious: No
  Sender: FDA-Public Use
  Company Number: 04P-163-0255091-00

PATIENT
  Age: 47 Year
  Sex: Female
  Weight: 52.6173 kg

DRUGS (6)
  1. HUMIRA [Suspect]
     Indication: SPONDYLOARTHROPATHY
     Dosage: 40 MG, 1 IN 2 WK, SUBCUTANEOUS
     Route: 058
     Dates: start: 20030601, end: 20030901
  2. HUMIRA [Suspect]
     Indication: SPONDYLOARTHROPATHY
     Dosage: 40 MG, 1 IN 2 WK, SUBCUTANEOUS
     Route: 058
     Dates: start: 20030901
  3. MYCOPHENOLATE MOFETIL [Concomitant]
  4. FUROSEMIDE [Concomitant]
  5. ISOPHANE INSULIN [Concomitant]
  6. INSULIN HUMAN [Concomitant]

REACTIONS (4)
  - COUGH [None]
  - HOARSENESS [None]
  - NASOPHARYNGITIS [None]
  - RASH PRURITIC [None]
